FAERS Safety Report 4369965-0 (Version None)
Quarter: 2004Q2

REPORT INFORMATION
  Report Type: 
  Country: None (occurrence: None)
  Receive Date: 20040525
  Receipt Date: 20040512
  Transmission Date: 20050107
  Serious: Yes (Other)
  Sender: FDA-Public Use
  Company Number: 2004032432

PATIENT
  Age: 75 Year
  Sex: Male

DRUGS (5)
  1. AMLODIPINE [Suspect]
     Indication: ILL-DEFINED DISORDER
     Dosage: ORAL
     Route: 048
     Dates: start: 20040101
  2. CEFACLOR [Concomitant]
  3. METRONIDAZOLE [Concomitant]
  4. BIMATOPROST (BIMATOPROST) [Concomitant]
  5. BRINZOLAMIDE (BRINZOLAMIDE) [Concomitant]

REACTIONS (1)
  - PANCYTOPENIA [None]
